FAERS Safety Report 20179720 (Version 13)
Quarter: 2025Q2

REPORT INFORMATION
  Report Type: Report from Study
  Country: CA (occurrence: CA)
  Receive Date: 20211214
  Receipt Date: 20250624
  Transmission Date: 20250717
  Serious: Yes (Hospitalization, Other)
  Sender: TAKEDA
  Company Number: CA-TAKEDA-2021TUS078123

PATIENT
  Age: 24 Year
  Sex: Female

DRUGS (26)
  1. VEDOLIZUMAB [Suspect]
     Active Substance: VEDOLIZUMAB
     Indication: Colitis ulcerative
  2. VEDOLIZUMAB [Suspect]
     Active Substance: VEDOLIZUMAB
  3. VEDOLIZUMAB [Suspect]
     Active Substance: VEDOLIZUMAB
  4. VEDOLIZUMAB [Suspect]
     Active Substance: VEDOLIZUMAB
  5. VEDOLIZUMAB [Suspect]
     Active Substance: VEDOLIZUMAB
  6. VEDOLIZUMAB [Suspect]
     Active Substance: VEDOLIZUMAB
  7. VEDOLIZUMAB [Suspect]
     Active Substance: VEDOLIZUMAB
  8. VEDOLIZUMAB [Suspect]
     Active Substance: VEDOLIZUMAB
  9. VEDOLIZUMAB [Suspect]
     Active Substance: VEDOLIZUMAB
  10. VEDOLIZUMAB [Suspect]
     Active Substance: VEDOLIZUMAB
  11. VEDOLIZUMAB [Suspect]
     Active Substance: VEDOLIZUMAB
  12. VEDOLIZUMAB [Suspect]
     Active Substance: VEDOLIZUMAB
  13. VEDOLIZUMAB [Suspect]
     Active Substance: VEDOLIZUMAB
  14. BENADRYL [Suspect]
     Active Substance: DIPHENHYDRAMINE HYDROCHLORIDE
     Indication: Product used for unknown indication
  15. MESALAMINE [Concomitant]
     Active Substance: MESALAMINE
  16. VITAMIN D [Concomitant]
     Active Substance: VITAMIN D NOS
  17. POLYETHYLENE GLYCOL 3350 [Concomitant]
     Active Substance: POLYETHYLENE GLYCOL 3350
     Dosage: UNK, BID
  18. Iode [Concomitant]
  19. KETOPROFEN [Concomitant]
     Active Substance: KETOPROFEN
  20. RAMIPRIL [Concomitant]
     Active Substance: RAMIPRIL
  21. INDAPAMIDE [Concomitant]
     Active Substance: INDAPAMIDE
  22. ROSUVASTATIN [Concomitant]
     Active Substance: ROSUVASTATIN
  23. BISOPROLOL [Concomitant]
     Active Substance: BISOPROLOL
  24. ASPIRIN [Concomitant]
     Active Substance: ASPIRIN
  25. SPIRONOLACTONE [Concomitant]
     Active Substance: SPIRONOLACTONE
  26. PREDNISONE [Concomitant]
     Active Substance: PREDNISONE

REACTIONS (31)
  - Infusion related reaction [Recovered/Resolved]
  - Ileus paralytic [Recovered/Resolved]
  - Insomnia [Recovered/Resolved]
  - Haematochezia [Unknown]
  - Abdominal pain [Recovered/Resolved]
  - Constipation [Recovered/Resolved]
  - Blood pressure ambulatory increased [Recovered/Resolved with Sequelae]
  - Tachycardia [Recovered/Resolved with Sequelae]
  - Skin hyperpigmentation [Not Recovered/Not Resolved]
  - Lacrimation increased [Recovered/Resolved]
  - Rash macular [Not Recovered/Not Resolved]
  - Vision blurred [Unknown]
  - Eye irritation [Unknown]
  - Eye pain [Unknown]
  - Muscle twitching [Not Recovered/Not Resolved]
  - Somnolence [Recovered/Resolved]
  - Frequent bowel movements [Unknown]
  - Abnormal faeces [Unknown]
  - Vascular access site pruritus [Recovered/Resolved]
  - Weight decreased [Unknown]
  - Dermatitis contact [Recovered/Resolved]
  - Heart rate increased [Unknown]
  - Blood pressure increased [Unknown]
  - Asthenia [Recovered/Resolved]
  - Acne [Unknown]
  - Erythema [Unknown]
  - Arthralgia [Not Recovered/Not Resolved]
  - Pruritus [Recovered/Resolved]
  - Fatigue [Unknown]
  - Rash [Not Recovered/Not Resolved]
  - Infusion site pain [Recovered/Resolved]

NARRATIVE: CASE EVENT DATE: 20211206
